FAERS Safety Report 9686062 (Version 1)
Quarter: 2013Q4

REPORT INFORMATION
  Report Type: Spontaneous
  Country: US (occurrence: US)
  Receive Date: 20131113
  Receipt Date: 20131113
  Transmission Date: 20140711
  Serious: No
  Sender: FDA-Public Use
  Company Number: US-ALLERGAN-1216275US

PATIENT
  Age: 55 Year
  Sex: Male

DRUGS (3)
  1. COMBIGAN[R] [Suspect]
     Indication: GLAUCOMA
     Dosage: 2 GTT, UNK
     Route: 047
     Dates: start: 2011
  2. TRAVATAN [Concomitant]
     Indication: GLAUCOMA
     Dosage: 2 GTT, PRN
     Route: 047
  3. NORVASC                            /00972401/ [Concomitant]
     Indication: HYPERTENSION
     Dosage: 5 MG, QD
     Route: 048

REACTIONS (1)
  - Scleral hyperaemia [Not Recovered/Not Resolved]
